FAERS Safety Report 20061379 (Version 3)
Quarter: 2021Q4

REPORT INFORMATION
  Report Type: Other
  Country: FR (occurrence: FR)
  Receive Date: 20211112
  Receipt Date: 20211229
  Transmission Date: 20220303
  Serious: Yes (Life-Threatening, Hospitalization)
  Sender: FDA-Public Use
  Company Number: FR-ROCHE-2953462

PATIENT
  Age: 17 Year
  Sex: Female

DRUGS (2)
  1. RITUXIMAB [Suspect]
     Active Substance: RITUXIMAB
     Indication: Autoimmune neutropenia
     Route: 065
  2. CYCLOPHOSPHAMIDE [Suspect]
     Active Substance: CYCLOPHOSPHAMIDE
     Indication: Autoimmune neutropenia
     Route: 065

REACTIONS (8)
  - Aspergillus infection [Unknown]
  - Fungal endocarditis [Unknown]
  - Sinusitis [Unknown]
  - Septic embolus [Unknown]
  - Brain compression [Unknown]
  - Aspergillus infection [Unknown]
  - Brain abscess [Unknown]
  - Off label use [Unknown]
